FAERS Safety Report 9114775 (Version 1)
Quarter: 2013Q1

REPORT INFORMATION
  Report Type: Spontaneous
  Country: US (occurrence: None)
  Receive Date: 20130220
  Receipt Date: 20130220
  Transmission Date: 20140127
  Serious: Yes (Other)
  Sender: FDA-Public Use
  Company Number: None

PATIENT
  Age: 22 Year
  Sex: Male

DRUGS (2)
  1. LAMOTRIGINE XR [Suspect]
     Dosage: LAMOTRIGINE XR  200MG   1 Q AM  P.O.?01/31/13  -  CURRENT
     Dates: start: 20130131
  2. LAMOTRIGINE XR [Suspect]
     Dosage: LAMOTRIGINE XR  50MG  1 Q AM  P.O.?
     Route: 048

REACTIONS (1)
  - Product substitution issue [None]
